FAERS Safety Report 6836182-1 (Version None)
Quarter: 2010Q3

REPORT INFORMATION
  Report Type: 
  Country: None (occurrence: None)
  Receive Date: 20100713
  Receipt Date: 20100702
  Transmission Date: 20110219
  Serious: No
  Sender: FDA-Public Use
  Company Number: US-JNJFOC-20100702359

PATIENT
  Sex: Female
  Weight: 95.26 kg

DRUGS (5)
  1. DURAGESIC-100 [Suspect]
     Indication: PAIN
     Dosage: NDC: 50458-093-05
     Route: 062
  2. MS CONTIN [Concomitant]
     Indication: BREAKTHROUGH PAIN
     Route: 048
  3. DILAUDID [Concomitant]
     Indication: PAIN
     Route: 048
  4. ESTRADIOL [Concomitant]
     Indication: HORMONE THERAPY
     Route: 065
  5. TIZANIDINE HCL [Concomitant]
     Indication: INSOMNIA
     Route: 048

REACTIONS (3)
  - ARTHRITIS [None]
  - PRODUCT ADHESION ISSUE [None]
  - WRONG TECHNIQUE IN DRUG USAGE PROCESS [None]
